FAERS Safety Report 8915088 (Version 6)
Quarter: 2013Q1

REPORT INFORMATION
  Report Type: Spontaneous
  Country: US (occurrence: US)
  Receive Date: 20121119
  Receipt Date: 20130130
  Transmission Date: 20140127
  Serious: Yes (Life-Threatening, Hospitalization)
  Sender: FDA-Public Use
  Company Number: PHEH2012US022552

PATIENT
  Age: 39 Year
  Sex: Female

DRUGS (9)
  1. GILENYA [Suspect]
     Dosage: 0.5 MG, QD
     Route: 048
     Dates: start: 201206
  2. VICODIN [Concomitant]
     Indication: PAIN
     Dosage: 5-500 MG AS NEEDED
     Route: 048
  3. ZOLOFT [Concomitant]
     Dosage: 1 DF, QD
     Route: 048
  4. VALIUM [Concomitant]
     Dosage: 10 MG, BID
     Route: 048
  5. LYRICA [Concomitant]
     Dosage: 75 MG, FOR 2 WEEKS AND THEN TWICE DAILY
     Route: 048
  6. PRILOSEC//OMEPRAZOLE [Concomitant]
     Dosage: 1 DF, QD
     Route: 048
  7. NAPROSYN [Concomitant]
     Dosage: 1 DF, BID WITH MEALS
     Route: 048
  8. FERROUS SULFATE [Concomitant]
     Dosage: 1 DF, TID WITH MEALS
     Route: 048
  9. IMITREX [Concomitant]
     Dosage: 100 MG, UNK

REACTIONS (6)
  - Cerebral vasoconstriction [Unknown]
  - Vasculitis cerebral [Recovering/Resolving]
  - Cerebral haemorrhage [Recovering/Resolving]
  - Convulsion [Recovering/Resolving]
  - Multiple sclerosis relapse [Recovering/Resolving]
  - Central nervous system lesion [Recovering/Resolving]
